FAERS Safety Report 4392786-X (Version None)
Quarter: 2004Q3

REPORT INFORMATION
  Report Type: 
  Country: None (occurrence: None)
  Receive Date: 20040702
  Receipt Date: 20040311
  Transmission Date: 20050211
  Serious: Yes (Other)
  Sender: FDA-Public Use
  Company Number: 2004UW04887

PATIENT

DRUGS (1)
  1. CRESTOR [Suspect]

REACTIONS (3)
  - FLATULENCE [None]
  - FREQUENT BOWEL MOVEMENTS [None]
  - LOOSE STOOLS [None]
